FAERS Safety Report 18336127 (Version 2)
Quarter: 2022Q4

REPORT INFORMATION
  Report Type: Spontaneous
  Country: DE (occurrence: DE)
  Receive Date: 20201001
  Receipt Date: 20221212
  Transmission Date: 20230113
  Serious: Yes (Hospitalization)
  Sender: FDA-Public Use
  Company Number: DE-ADRED-05431-01

PATIENT
  Age: 83 Year
  Sex: Female

DRUGS (11)
  1. CANDESARTAN CILEXETIL\HYDROCHLOROTHIAZIDE [Suspect]
     Active Substance: CANDESARTAN CILEXETIL\HYDROCHLOROTHIAZIDE
     Indication: Product used for unknown indication
     Dosage: UNK UNK, QD(16|12.5 MG, 1-0-0-0, TABLETTEN)
     Route: 048
  2. NEBIVOLOL [Concomitant]
     Active Substance: NEBIVOLOL
     Dosage: 5 MG, 1-0-0-0, TABLETTEN
     Route: 048
  3. THIAMINE [Concomitant]
     Active Substance: THIAMINE
     Dosage: 100 MG, 0-1-0-0, TABLETTEN
     Route: 048
  4. INSULIN LISPRO [Concomitant]
     Active Substance: INSULIN LISPRO
     Dosage: 1 INTERNATIONAL UNIT(1 IE, 18-14-16-0, AMPULLEN)
     Route: 058
  5. ASPIRIN [Concomitant]
     Active Substance: ASPIRIN
     Dosage: 100 MG, 0-1-0-0, TABLETTEN
     Route: 048
  6. LEVOTHYROXINE SODIUM;POTASSIUM IODIDE [Concomitant]
     Dosage: 50/150 ?G, 1-0-0-0, TABLETTEN
     Route: 048
  7. IODINE [Concomitant]
     Active Substance: IODINE
     Dosage: 200 ?G, 1-0-0-0, TABLETTEN
     Route: 048
  8. INSULIN DEGLUDEC [Concomitant]
     Active Substance: INSULIN DEGLUDEC
     Dosage: 30 INTERNATIONAL UNIT,QD(30 IE, 0-0-0-1, AMPULLEN)
     Route: 058
  9. PANTOPRAZOLE SODIUM [Concomitant]
     Active Substance: PANTOPRAZOLE SODIUM
     Dosage: 40 MG, 1-0-0-0, TABLETTEN
     Route: 048
  10. FOSTER [Concomitant]
     Active Substance: BECLOMETHASONE\FORMOTEROL
     Dosage: 100|6 ?G, 1-0-1-0, DOSIERAEROSOL
     Route: 055
  11. BIOTIN [Concomitant]
     Active Substance: BIOTIN
     Dosage: 5 MG, 1-0-0-0, TABLETTEN
     Route: 048

REACTIONS (8)
  - Dyspnoea [Unknown]
  - General physical health deterioration [Unknown]
  - Infection [Unknown]
  - Dehydration [Unknown]
  - Thirst [Unknown]
  - Nausea [Unknown]
  - Cough [Unknown]
  - Dizziness [Unknown]
